FAERS Safety Report 8763369 (Version 1)
Quarter: 2012Q4

REPORT INFORMATION
  Report Type: 
  Country: US (occurrence: US)
  Receive Date: 20120831
  Receipt Date: 20120831
  Transmission Date: 20130627
  Serious: No
  Sender: FDA-Public Use
  Company Number: US-PFIZER INC-2012210043

PATIENT
  Age: 67 Year
  Sex: Male
  Weight: 96.6 kg

DRUGS (1)
  1. TORISEL [Suspect]
     Indication: RENAL CELL CARCINOMA
     Dosage: UNK
     Dates: start: 20120503, end: 20120726

REACTIONS (2)
  - Disease progression [Unknown]
  - Renal cell carcinoma [Unknown]
